FAERS Safety Report 7265374-5 (Version None)
Quarter: 2011Q1

REPORT INFORMATION
  Report Type: 
  Country: None (occurrence: None)
  Receive Date: 20110131
  Receipt Date: 20110125
  Transmission Date: 20110831
  Serious: Yes (Life-Threatening, Hospitalization)
  Sender: FDA-Public Use
  Company Number: GB-ROCHE-730404

PATIENT
  Sex: Male
  Weight: 78 kg

DRUGS (13)
  1. MYCOPHENOLATE MOFETIL [Suspect]
     Indication: ANTI-NEUTROPHIL CYTOPLASMIC ANTIBODY POSITIVE VASCULITIS
     Dosage: FREQUENCY: TDS
     Route: 065
     Dates: start: 20100602
  2. BISOPROLOL [Concomitant]
     Route: 048
     Dates: start: 20101224
  3. LANSOPRAZOLE [Concomitant]
     Route: 048
     Dates: start: 20101224
  4. MYCOPHENOLATE MOFETIL [Suspect]
     Route: 065
     Dates: start: 20100630, end: 20100922
  5. AZATHIOPRINE [Concomitant]
     Dates: start: 20100602
  6. ARANESP [Concomitant]
     Route: 042
     Dates: start: 20101229
  7. FOLIC ACID [Concomitant]
     Route: 048
     Dates: start: 20101224
  8. AZATHIOPRINE [Concomitant]
     Dates: start: 20101217
  9. ACETAMINOPHEN [Concomitant]
     Route: 048
     Dates: start: 20101224
  10. VITAMIN B [Concomitant]
     Route: 048
     Dates: start: 20101224
  11. PREDNISOLONE [Concomitant]
     Route: 048
     Dates: start: 20101224
  12. BUMETANIDE [Concomitant]
     Route: 048
     Dates: start: 20101224
  13. ALENDRONATE SODIUM [Concomitant]
     Route: 048
     Dates: start: 20101224

REACTIONS (3)
  - RENAL FAILURE CHRONIC [None]
  - CARDIAC ARREST [None]
  - PNEUMONIA [None]
